FAERS Safety Report 7606520-0 (Version None)
Quarter: 2011Q3

REPORT INFORMATION
  Report Type: 
  Country: None (occurrence: None)
  Receive Date: 20110713
  Receipt Date: 20110125
  Transmission Date: 20111222
  Serious: Yes (Other)
  Sender: FDA-Public Use
  Company Number: US-BAYER-201031086NA

PATIENT
  Age: 45 Year
  Sex: Female
  Weight: 75 kg

DRUGS (25)
  1. HUMULIN N [INSULIN HUMAN] [Concomitant]
  2. PRAVACHOL [Concomitant]
     Dosage: 40 MG, QD
     Route: 048
  3. IBUPROFEN (ADVIL) [Concomitant]
     Dosage: 600 MG, QD
     Route: 048
  4. PROTONIX [Concomitant]
     Dosage: 40 MG, QD
     Route: 048
  5. FENOLDOPAM [Concomitant]
     Dosage: UNK
     Dates: start: 20040524
  6. BENAZEPRIL HYDROCHLORIDE [Concomitant]
     Dosage: 40 MG, UNK
  7. FENTANYL-100 [Concomitant]
     Dosage: 5 MG, UNK
     Dates: start: 20040524
  8. HUMULIN N [INSULIN HUMAN] [Concomitant]
     Dosage: 46 U, QPM
     Route: 058
  9. XANAX [Concomitant]
     Dosage: UNK UNK, PRN
     Route: 048
  10. PRECEDEX [Concomitant]
     Dosage: UNK
     Dates: start: 20040524
  11. LASIX [Concomitant]
     Dosage: 40 MG, QD
  12. PRIMACOR [Concomitant]
     Dosage: UNK
     Dates: start: 20040524
  13. HUMULIN N [INSULIN HUMAN] [Concomitant]
     Dosage: 54 U, QAM
     Route: 058
  14. ACETYLSALICYLIC ACID SRT [Concomitant]
     Dosage: 325 MG, QD
     Route: 048
  15. GYNODIOL [Concomitant]
     Dosage: 1 MG, QD
     Route: 048
  16. INSULIN [Concomitant]
     Dosage: UNK
     Dates: start: 20040524
  17. RED BLOOD CELLS [Concomitant]
     Dosage: 2 U, UNK
     Route: 042
     Dates: start: 20040524, end: 20040524
  18. NORVASC [Concomitant]
     Dosage: 10 MG, QD
     Route: 048
  19. ACTONEL [Concomitant]
     Dosage: 35 MG, WEEKLY
     Route: 048
  20. TRASYLOL [Suspect]
     Indication: CORONARY ARTERY BYPASS
     Dosage: 100ML PUMP PRIME DOSE
     Dates: start: 20040524
  21. ATENOLOL [Concomitant]
     Dosage: 25 MG, UNK
  22. COUMADIN [Concomitant]
     Dosage: 2.5 MG, QD
  23. DOBUTAMINE HCL [Concomitant]
     Dosage: UNK
     Dates: start: 20040524
  24. LOPRESSOR [Concomitant]
     Dosage: 50 MG, QD
     Route: 048
     Dates: start: 20040520
  25. VASOPRESSIN [Concomitant]
     Dosage: UNK
     Dates: start: 20040524

REACTIONS (12)
  - ANXIETY [None]
  - UNEVALUABLE EVENT [None]
  - FEAR [None]
  - EMOTIONAL DISTRESS [None]
  - DEEP VEIN THROMBOSIS [None]
  - POST-TRAUMATIC STRESS DISORDER [None]
  - STRESS [None]
  - MYOCARDIAL INFARCTION [None]
  - ATRIAL FIBRILLATION [None]
  - DEPRESSION [None]
  - PAIN [None]
  - RESPIRATORY FAILURE [None]
